FAERS Safety Report 10345824 (Version 2)
Quarter: 2014Q3

REPORT INFORMATION
  Report Type: Spontaneous
  Country: SI (occurrence: SI)
  Receive Date: 20140728
  Receipt Date: 20140728
  Transmission Date: 20150326
  Serious: Yes (Other)
  Sender: FDA-Public Use
  Company Number: PHHY2014SI084154

PATIENT
  Age: 72 Year
  Sex: Male
  Weight: 69 kg

DRUGS (2)
  1. CARBOPLATIN. [Suspect]
     Active Substance: CARBOPLATIN
     Indication: OESOPHAGEAL SQUAMOUS CELL CARCINOMA METASTATIC
     Dates: start: 201304
  2. PACLITAXEL. [Suspect]
     Active Substance: PACLITAXEL
     Indication: OESOPHAGEAL SQUAMOUS CELL CARCINOMA METASTATIC
     Dosage: 175 MG/M2, UNK
     Dates: start: 201304

REACTIONS (12)
  - Malignant neoplasm progression [Unknown]
  - Neutropenia [Unknown]
  - Metastases to liver [Unknown]
  - Fatigue [Unknown]
  - Anaemia [Unknown]
  - Haematotoxicity [Unknown]
  - Oesophageal squamous cell carcinoma metastatic [Unknown]
  - Leukopenia [Unknown]
  - Thrombocytopenia [Unknown]
  - Condition aggravated [Unknown]
  - Febrile neutropenia [Unknown]
  - Drug effect incomplete [Unknown]

NARRATIVE: CASE EVENT DATE: 201312
